FAERS Safety Report 21530846 (Version 1)
Quarter: 2022Q4

REPORT INFORMATION
  Report Type: Spontaneous
  Country: US (occurrence: None)
  Receive Date: 20221028
  Receipt Date: 20221028
  Transmission Date: 20230113
  Serious: Yes (Hospitalization)
  Sender: FDA-Public Use
  Company Number: None

PATIENT
  Age: 75 Year
  Sex: Male

DRUGS (2)
  1. BENDAMUSTINE HYDROCHLORIDE [Suspect]
     Active Substance: BENDAMUSTINE HYDROCHLORIDE
     Indication: Neoplasm malignant
     Dosage: OTHER STRENGTH : 100MG/VIL;?
     Dates: start: 20220720
  2. RITUXIMAB [Suspect]
     Active Substance: RITUXIMAB

REACTIONS (4)
  - Pyrexia [None]
  - Chills [None]
  - Infection [None]
  - Immunosuppression [None]

NARRATIVE: CASE EVENT DATE: 20220802
